FAERS Safety Report 9377194 (Version 1)
Quarter: 2013Q3

REPORT INFORMATION
  Report Type: Spontaneous
  Country: US (occurrence: US)
  Receive Date: 20130701
  Receipt Date: 20130701
  Transmission Date: 20140515
  Serious: No
  Sender: FDA-Public Use
  Company Number: US-BAYER-2013-077724

PATIENT
  Age: 64 Year
  Sex: Female

DRUGS (1)
  1. GADAVIST [Suspect]
     Dosage: 8 ML, ONCE
     Dates: start: 20130301, end: 20130301

REACTIONS (2)
  - Vomiting [Recovered/Resolved]
  - Nausea [Recovered/Resolved]
